FAERS Safety Report 8557254-X (Version None)
Quarter: 2012Q3

REPORT INFORMATION
  Report Type: 
  Country: None (occurrence: None)
  Receive Date: 20120801
  Receipt Date: 20120727
  Transmission Date: 20120928
  Serious: Yes (Hospitalization, Other)
  Sender: FDA-Public Use
  Company Number: PHEH2011US012902

PATIENT
  Sex: Female

DRUGS (13)
  1. TOBI [Suspect]
     Indication: CYSTIC FIBROSIS
     Dosage: 300 MG, BID, ALTERNATIVE 28 DAYS
     Dates: end: 20111228
  2. PULMOZYME [Concomitant]
  3. CREON [Concomitant]
     Indication: PANCREATIC INSUFFICIENCY
     Dosage: 3 DF, PRN
     Route: 048
  4. PRILOSEC [Concomitant]
     Indication: GASTROOESOPHAGEAL REFLUX DISEASE
     Dosage: 40 MG, UNK
     Route: 048
  5. VALTEN [Concomitant]
     Dosage: 10 MG, PRN
     Route: 048
  6. ALBUTEROL [Concomitant]
     Indication: LUNG DISORDER
  7. OMEPRAZOLE [Concomitant]
  8. BONIVA [Concomitant]
     Dosage: 150 MG, QMO
     Route: 048
  9. ADVAIR DISKUS 100/50 [Concomitant]
  10. ZOFRAN [Concomitant]
  11. MORPHINE SULFATE [Concomitant]
     Indication: PAIN
     Route: 048
  12. TOBI [Suspect]
  13. ADEK [Concomitant]
     Indication: PANCREATIC INSUFFICIENCY
     Route: 048

REACTIONS (2)
  - PANCREATITIS ACUTE [None]
  - DYSPHONIA [None]
